FAERS Safety Report 13807533 (Version 1)
Quarter: 2017Q3

REPORT INFORMATION
  Report Type: Spontaneous
  Country: US (occurrence: US)
  Receive Date: 20170728
  Receipt Date: 20170728
  Transmission Date: 20171127
  Serious: No
  Sender: FDA-Public Use
  Company Number: US-AKRIMAX-TIR-2017-0422

PATIENT
  Age: 79 Year
  Sex: Female
  Weight: 67.19 kg

DRUGS (1)
  1. TIROSINT [Suspect]
     Active Substance: LEVOTHYROXINE SODIUM
     Indication: HYPOTHYROIDISM
     Dosage: ONE 50MCG CAPSULE DAILY
     Route: 048
     Dates: start: 20170420, end: 20170421

REACTIONS (5)
  - Tongue disorder [Unknown]
  - Lip swelling [Recovering/Resolving]
  - Swollen tongue [Unknown]
  - Peripheral coldness [Unknown]
  - Urticaria [Unknown]

NARRATIVE: CASE EVENT DATE: 20170420
